FAERS Safety Report 4668761-4 (Version None)
Quarter: 2005Q2

REPORT INFORMATION
  Report Type: 
  Country: None (occurrence: None)
  Receive Date: 20050519
  Receipt Date: 20050322
  Transmission Date: 20051028
  Serious: Yes (Hospitalization)
  Sender: FDA-Public Use
  Company Number: 2005048325

PATIENT
  Age: 65 Year
  Sex: Female
  Weight: 134.7183 kg

DRUGS (6)
  1. BEXTRA [Suspect]
     Indication: ARTHRITIS
     Dosage: 40 MG (20 MG, 2 IN 1 D), ORAL
     Route: 048
     Dates: start: 20000101
  2. REFLUDAN [Suspect]
     Indication: THROMBOSIS
     Dates: end: 20010101
  3. PERCOCET [Suspect]
     Indication: PAIN
  4. OXSYCONTIN (OXYCODONE HYDROCHLORIDE) [Suspect]
     Indication: PAIN
  5. DARVOCET (DEXTROPROPOXYPHENE NAPSILATE, PARACETAMOL) [Concomitant]
  6. NORVASC [Concomitant]

REACTIONS (15)
  - ARTHRALGIA [None]
  - BLOOD PRESSURE DECREASED [None]
  - BONE DISORDER [None]
  - CEREBRAL HAEMORRHAGE [None]
  - DIFFICULTY IN WALKING [None]
  - DIZZINESS [None]
  - DRUG EFFECT DECREASED [None]
  - DRUG INEFFECTIVE [None]
  - EAR DISORDER [None]
  - MALAISE [None]
  - PANIC ATTACK [None]
  - PULMONARY THROMBOSIS [None]
  - SYNCOPE [None]
  - THROMBOSIS [None]
  - VERTIGO [None]
